FAERS Safety Report 9896789 (Version 2)
Quarter: 2014Q1

REPORT INFORMATION
  Report Type: Spontaneous
  Country: US (occurrence: US)
  Receive Date: 20140213
  Receipt Date: 20140213
  Transmission Date: 20141002
  Serious: No
  Sender: FDA-Public Use
  Company Number: US-BRISTOL-MYERS SQUIBB COMPANY-19200013

PATIENT
  Age: 55 Year
  Sex: Female
  Weight: 73.47 kg

DRUGS (7)
  1. ABATACEPT SUBQ INJECTION 125MG/ML [Suspect]
     Indication: PSORIATIC ARTHROPATHY
     Dosage: 1DF=125MG/ML.
     Route: 058
     Dates: start: 201203, end: 20130809
  2. ABATACEPT SUBQ INJECTION 125MG/ML [Suspect]
     Indication: RHEUMATOID ARTHRITIS
     Dosage: 1DF=125MG/ML.
     Route: 058
     Dates: start: 201203, end: 20130809
  3. ACETAMINOPHEN [Concomitant]
  4. LEVOTHYROXIN [Concomitant]
  5. MVI [Concomitant]
  6. NAPROXEN [Concomitant]
  7. SULFASALAZINE [Concomitant]

REACTIONS (1)
  - Drug ineffective [Not Recovered/Not Resolved]
